FAERS Safety Report 16535757 (Version 2)
Quarter: 2019Q3

REPORT INFORMATION
  Report Type: Spontaneous
  Country: GB (occurrence: GB)
  Receive Date: 20190705
  Receipt Date: 20190909
  Transmission Date: 20191004
  Serious: Yes (Other)
  Sender: FDA-Public Use
  Company Number: GB-ROCHE-2348490

PATIENT
  Age: 10 Year
  Sex: Female

DRUGS (5)
  1. PRIMIDONE. [Concomitant]
     Active Substance: PRIMIDONE
  2. SULTHIAME [Concomitant]
     Active Substance: SULTHIAME
  3. DEXAMPHETAMINE [Concomitant]
     Active Substance: AMPHETAMINE
  4. DIAZEPAM. [Suspect]
     Active Substance: DIAZEPAM
     Indication: EPILEPSY
     Route: 042
  5. DIPHENYLHYDANTOIN [PHENYTOIN] [Concomitant]

REACTIONS (2)
  - Status epilepticus [Recovered/Resolved]
  - Apnoea [Recovered/Resolved]
